FAERS Safety Report 16866742 (Version 1)
Quarter: 2019Q3

REPORT INFORMATION
  Report Type: Report from Study
  Country: CO (occurrence: CO)
  Receive Date: 20190930
  Receipt Date: 20190930
  Transmission Date: 20191005
  Serious: Yes (Other)
  Sender: FDA-Public Use
  Company Number: PHHY2019CO223831

PATIENT
  Sex: Female

DRUGS (1)
  1. REVOLADE [Suspect]
     Active Substance: ELTROMBOPAG
     Indication: THROMBOCYTOPENIA
     Dosage: 50 MG, QD
     Route: 048

REACTIONS (6)
  - Dysuria [Unknown]
  - Headache [Unknown]
  - Adrenal insufficiency [Unknown]
  - Sleep disorder [Unknown]
  - Speech disorder [Unknown]
  - Eye disorder [Unknown]
